FAERS Safety Report 8210786-6 (Version None)
Quarter: 2012Q1

REPORT INFORMATION
  Report Type: 
  Country: None (occurrence: None)
  Receive Date: 20120315
  Receipt Date: 20120306
  Transmission Date: 20120608
  Serious: No
  Sender: FDA-Public Use
  Company Number: US-BIOGENIDEC-2012BI007961

PATIENT
  Age: 27 Year
  Sex: Female

DRUGS (3)
  1. TYSABRI [Suspect]
     Indication: MULTIPLE SCLEROSIS
     Route: 042
     Dates: start: 20070209, end: 20100525
  2. TYSABRI [Suspect]
     Route: 042
     Dates: start: 20110801, end: 20111101
  3. TYSABRI [Suspect]
     Route: 042
     Dates: start: 20120305

REACTIONS (9)
  - MUSCULOSKELETAL STIFFNESS [None]
  - HEADACHE [None]
  - ABDOMINAL PAIN UPPER [None]
  - OPTIC NEURITIS [None]
  - PAIN [None]
  - PALLOR [None]
  - DIARRHOEA [None]
  - MIGRAINE [None]
  - NAUSEA [None]
